FAERS Safety Report 9235629 (Version 1)
Quarter: 2013Q2

REPORT INFORMATION
  Report Type: Spontaneous
  Country: US (occurrence: None)
  Receive Date: 20130416
  Receipt Date: 20130416
  Transmission Date: 20140414
  Serious: Yes (Hospitalization)
  Sender: FDA-Public Use
  Company Number: None

PATIENT
  Age: 50 Year
  Sex: Female

DRUGS (2)
  1. TASIGNA [Suspect]
     Route: 048
     Dates: start: 20110914, end: 20130324
  2. NAPROXEN 500 MG [Concomitant]

REACTIONS (1)
  - Pancreatitis [None]
